FAERS Safety Report 8881076 (Version 1)
Quarter: 2012Q4

REPORT INFORMATION
  Report Type: 
  Country: US (occurrence: US)
  Receive Date: 20121101
  Receipt Date: 20121101
  Transmission Date: 20130627
  Serious: Yes (Other)
  Sender: FDA-Public Use
  Company Number: US-JNJFOC-20121015144

PATIENT
  Age: 81 Year
  Sex: Female
  Weight: 72.58 kg

DRUGS (5)
  1. XARELTO [Suspect]
     Indication: CEREBROVASCULAR ACCIDENT PROPHYLAXIS
     Route: 048
     Dates: start: 20120501
  2. XARELTO [Suspect]
     Indication: ATRIAL FIBRILLATION
     Route: 048
     Dates: start: 20120501
  3. NORPACE [Concomitant]
     Indication: CARDIAC DISORDER
     Route: 048
  4. LABETALOL [Concomitant]
     Indication: HYPERTENSION
     Route: 048
  5. CRESTOR [Concomitant]
     Indication: HYPERCHOLESTEROLAEMIA
     Route: 048

REACTIONS (4)
  - Blood urine present [Not Recovered/Not Resolved]
  - Intervertebral disc protrusion [Not Recovered/Not Resolved]
  - Sciatica [Not Recovered/Not Resolved]
  - Weight increased [Not Recovered/Not Resolved]
